FAERS Safety Report 6961556-8 (Version None)
Quarter: 2010Q3

REPORT INFORMATION
  Report Type: 
  Country: None (occurrence: None)
  Receive Date: 20100901
  Receipt Date: 20100818
  Transmission Date: 20110219
  Serious: Yes (Life-Threatening, Hospitalization)
  Sender: FDA-Public Use
  Company Number: US-MYLANLABS-2010S1015024

PATIENT
  Age: 7 Year
  Sex: Male
  Weight: 23 kg

DRUGS (3)
  1. ETOPOSIDE [Suspect]
     Indication: LYMPHOHISTIOCYTOSIS
     Dosage: 150 MG/M2 TWICE WEEKLY (BODY SURFACE AREA 0.89 M2)
     Route: 065
  2. DEXAMETHASONE [Concomitant]
     Indication: LYMPHOHISTIOCYTOSIS
     Dosage: 10 MG/M2 PER DAY IN TWO DIVIDED DOSES
  3. CYCLOSPORINE [Concomitant]
     Indication: LYMPHOHISTIOCYTOSIS
     Dosage: TWICE DAILY CICLOSPORIN 1.5 MG/KG PER DOSE

REACTIONS (1)
  - MYOCARDIAL INFARCTION [None]
